FAERS Safety Report 9192420 (Version 1)
Quarter: 2013Q1

REPORT INFORMATION
  Report Type: Spontaneous
  Country: US (occurrence: None)
  Receive Date: 20130326
  Receipt Date: 20130326
  Transmission Date: 20140127
  Serious: Yes (Hospitalization)
  Sender: FDA-Public Use
  Company Number: None

PATIENT
  Sex: Male
  Weight: 84.58 kg

DRUGS (1)
  1. CISPLATIN [Suspect]

REACTIONS (7)
  - Pyrexia [None]
  - Nausea [None]
  - Vomiting [None]
  - Diarrhoea [None]
  - Febrile neutropenia [None]
  - Tongue oedema [None]
  - Neuropathy peripheral [None]
